FAERS Safety Report 23481650 (Version 1)
Quarter: 2024Q1

REPORT INFORMATION
  Report Type: Spontaneous
  Country: US (occurrence: None)
  Receive Date: 20240202
  Receipt Date: 20240202
  Transmission Date: 20240409
  Serious: Yes (Other)
  Sender: FDA-Public Use
  Company Number: None

PATIENT
  Age: 56 Year
  Sex: Female
  Weight: 72 kg

DRUGS (1)
  1. WEGOVY [Suspect]
     Active Substance: SEMAGLUTIDE
     Indication: Obesity
     Dosage: OTHER FREQUENCY : WEEKLY;?
     Route: 030
     Dates: start: 20231226, end: 20240104

REACTIONS (9)
  - Bipolar disorder [None]
  - Decreased appetite [None]
  - Nausea [None]
  - Constipation [None]
  - Dizziness [None]
  - Fall [None]
  - Contusion [None]
  - Bedridden [None]
  - Face injury [None]

NARRATIVE: CASE EVENT DATE: 20240103
